FAERS Safety Report 16668053 (Version 1)
Quarter: 2019Q3

REPORT INFORMATION
  Report Type: Spontaneous
  Country: GB (occurrence: GB)
  Receive Date: 20190805
  Receipt Date: 20190805
  Transmission Date: 20191004
  Serious: Yes (Hospitalization)
  Sender: FDA-Public Use
  Company Number: GB-ROCHE-2366253

PATIENT
  Age: 47 Year
  Sex: Male

DRUGS (12)
  1. RIBAVIRIN. [Suspect]
     Active Substance: RIBAVIRIN
     Indication: HEPATITIS C
     Dosage: REDUCED ON 30TH MAY TO 400 MG BD?MOST RECENT DOSE ON 06/JUN/2019
     Route: 048
     Dates: start: 20190530
  2. OMEPRAZOLE. [Concomitant]
     Active Substance: OMEPRAZOLE
  3. RIFAXIMIN. [Concomitant]
     Active Substance: RIFAXIMIN
  4. DOXYCYCLINE. [Concomitant]
     Active Substance: DOXYCYCLINE
  5. TRIMETHOPRIM. [Concomitant]
     Active Substance: TRIMETHOPRIM
  6. SPIRONOLACTONE. [Concomitant]
     Active Substance: SPIRONOLACTONE
  7. AMOXICILLIN. [Concomitant]
     Active Substance: AMOXICILLIN
  8. METHADONE [Concomitant]
     Active Substance: METHADONE HYDROCHLORIDE
  9. SALBUTAMOL [Concomitant]
     Active Substance: ALBUTEROL
  10. EPCLUSA [Concomitant]
     Active Substance: SOFOSBUVIR\VELPATASVIR
  11. RIBAVIRIN. [Suspect]
     Active Substance: RIBAVIRIN
     Indication: HEPATITIS C
     Dosage: 600 MG BD
     Route: 048
     Dates: start: 20190411, end: 20190529
  12. CARVEDILOL. [Concomitant]
     Active Substance: CARVEDILOL
     Route: 065

REACTIONS (5)
  - Diarrhoea [Unknown]
  - Abdominal pain [Unknown]
  - Enterocolitis haemorrhagic [Not Recovered/Not Resolved]
  - Frequent bowel movements [Unknown]
  - Rectal haemorrhage [Unknown]
